FAERS Safety Report 23154513 (Version 1)
Quarter: 2023Q4

REPORT INFORMATION
  Report Type: Spontaneous
  Country: US (occurrence: None)
  Receive Date: 20231107
  Receipt Date: 20231107
  Transmission Date: 20240110
  Serious: Yes (Hospitalization)
  Sender: FDA-Public Use
  Company Number: None

PATIENT
  Age: 37 Year
  Sex: Male

DRUGS (7)
  1. MYCOPHENOLIC ACID [Suspect]
     Active Substance: MYCOPHENOLIC ACID
     Indication: Immunosuppression
     Dosage: FREQUENCY : TWICE A DAY;?
     Route: 048
     Dates: start: 20231027
  2. TACROLIMUS [Suspect]
     Active Substance: TACROLIMUS
     Indication: Immunosuppression
     Dosage: FREQUENCY : TWICE A DAY;?
     Route: 048
     Dates: start: 20231027
  3. valganciclovir 450 mg [Concomitant]
     Dates: start: 20231027
  4. sulfamethoxazole 400mg - trimethoprim 80mg [Concomitant]
     Dates: start: 20231027
  5. PREDNISONE [Concomitant]
     Active Substance: PREDNISONE
     Dates: start: 20231027
  6. aspirin 81 mg chewable [Concomitant]
     Dates: start: 20231027
  7. oyster calcium 500 mg [Concomitant]
     Dates: start: 20231027

REACTIONS (1)
  - Transplantation complication [None]

NARRATIVE: CASE EVENT DATE: 20231101
